FAERS Safety Report 25996820 (Version 1)
Quarter: 2025Q4

REPORT INFORMATION
  Report Type: Spontaneous
  Country: EU (occurrence: EU)
  Receive Date: 20251104
  Receipt Date: 20251104
  Transmission Date: 20260119
  Serious: Yes (Hospitalization)
  Sender: MYLAN
  Company Number: None

PATIENT
  Age: 54 Year
  Sex: Male
  Weight: 88 kg

DRUGS (32)
  1. CLOZAPINE [Interacting]
     Active Substance: CLOZAPINE
     Indication: Product used for unknown indication
     Dosage: 1 DOSAGE FORM, 1 TOTAL
     Dates: start: 20250918, end: 20250918
  2. CLOZAPINE [Interacting]
     Active Substance: CLOZAPINE
     Dosage: 1 DOSAGE FORM, 1 TOTAL
     Route: 048
     Dates: start: 20250918, end: 20250918
  3. CLOZAPINE [Interacting]
     Active Substance: CLOZAPINE
     Dosage: 1 DOSAGE FORM, 1 TOTAL
     Route: 048
     Dates: start: 20250918, end: 20250918
  4. CLOZAPINE [Interacting]
     Active Substance: CLOZAPINE
     Dosage: 1 DOSAGE FORM, 1 TOTAL
     Dates: start: 20250918, end: 20250918
  5. CYAMEMAZINE [Interacting]
     Active Substance: CYAMEMAZINE
     Indication: Product used for unknown indication
     Dosage: 50 MILLIGRAM, QD
  6. CYAMEMAZINE [Interacting]
     Active Substance: CYAMEMAZINE
     Dosage: 50 MILLIGRAM, QD
     Route: 048
  7. CYAMEMAZINE [Interacting]
     Active Substance: CYAMEMAZINE
     Dosage: 50 MILLIGRAM, QD
     Route: 048
  8. CYAMEMAZINE [Interacting]
     Active Substance: CYAMEMAZINE
     Dosage: 50 MILLIGRAM, QD
  9. BRINTELLIX [Interacting]
     Active Substance: VORTIOXETINE HYDROBROMIDE
     Indication: Product used for unknown indication
     Dosage: 1 DOSAGE FORM, 1 TOTAL
     Dates: start: 20250918, end: 20250918
  10. BRINTELLIX [Interacting]
     Active Substance: VORTIOXETINE HYDROBROMIDE
     Dosage: 1 DOSAGE FORM, 1 TOTAL
     Route: 048
     Dates: start: 20250918, end: 20250918
  11. BRINTELLIX [Interacting]
     Active Substance: VORTIOXETINE HYDROBROMIDE
     Dosage: 1 DOSAGE FORM, 1 TOTAL
     Route: 048
     Dates: start: 20250918, end: 20250918
  12. BRINTELLIX [Interacting]
     Active Substance: VORTIOXETINE HYDROBROMIDE
     Dosage: 1 DOSAGE FORM, 1 TOTAL
     Dates: start: 20250918, end: 20250918
  13. TRIHEXYPHENIDYL HYDROCHLORIDE [Interacting]
     Active Substance: TRIHEXYPHENIDYL HYDROCHLORIDE
     Indication: Product used for unknown indication
     Dosage: UNK
  14. TRIHEXYPHENIDYL HYDROCHLORIDE [Interacting]
     Active Substance: TRIHEXYPHENIDYL HYDROCHLORIDE
     Dosage: UNK
     Route: 048
  15. TRIHEXYPHENIDYL HYDROCHLORIDE [Interacting]
     Active Substance: TRIHEXYPHENIDYL HYDROCHLORIDE
     Dosage: UNK
     Route: 048
  16. TRIHEXYPHENIDYL HYDROCHLORIDE [Interacting]
     Active Substance: TRIHEXYPHENIDYL HYDROCHLORIDE
     Dosage: UNK
  17. LOXAPINE SUCCINATE [Interacting]
     Active Substance: LOXAPINE SUCCINATE
     Indication: Product used for unknown indication
     Dosage: 50 MILLIGRAM, BID (12 HR)
  18. LOXAPINE SUCCINATE [Interacting]
     Active Substance: LOXAPINE SUCCINATE
     Dosage: 50 MILLIGRAM, BID (12 HR)
     Route: 048
  19. LOXAPINE SUCCINATE [Interacting]
     Active Substance: LOXAPINE SUCCINATE
     Dosage: 50 MILLIGRAM, BID (12 HR)
     Route: 048
  20. LOXAPINE SUCCINATE [Interacting]
     Active Substance: LOXAPINE SUCCINATE
     Dosage: 50 MILLIGRAM, BID (12 HR)
  21. VALPROATE SODIUM [Interacting]
     Active Substance: VALPROATE SODIUM
     Indication: Product used for unknown indication
     Dosage: 1500 MILLIGRAM, QD
  22. VALPROATE SODIUM [Interacting]
     Active Substance: VALPROATE SODIUM
     Dosage: 1500 MILLIGRAM, QD
     Route: 048
  23. VALPROATE SODIUM [Interacting]
     Active Substance: VALPROATE SODIUM
     Dosage: 1500 MILLIGRAM, QD
     Route: 048
  24. VALPROATE SODIUM [Interacting]
     Active Substance: VALPROATE SODIUM
     Dosage: 1500 MILLIGRAM, QD
  25. CLOBAZAM [Interacting]
     Active Substance: CLOBAZAM
     Indication: Product used for unknown indication
     Dosage: 20 MILLIGRAM, QD
  26. CLOBAZAM [Interacting]
     Active Substance: CLOBAZAM
     Dosage: 20 MILLIGRAM, QD
     Route: 048
  27. CLOBAZAM [Interacting]
     Active Substance: CLOBAZAM
     Dosage: 20 MILLIGRAM, QD
     Route: 048
  28. CLOBAZAM [Interacting]
     Active Substance: CLOBAZAM
     Dosage: 20 MILLIGRAM, QD
  29. ESOMEPRAZOLE MAGNESIUM [Concomitant]
     Active Substance: ESOMEPRAZOLE MAGNESIUM
     Indication: Product used for unknown indication
     Dosage: 20 MILLIGRAM, QD
  30. ESOMEPRAZOLE MAGNESIUM [Concomitant]
     Active Substance: ESOMEPRAZOLE MAGNESIUM
     Dosage: 20 MILLIGRAM, QD
     Route: 048
  31. ESOMEPRAZOLE MAGNESIUM [Concomitant]
     Active Substance: ESOMEPRAZOLE MAGNESIUM
     Dosage: 20 MILLIGRAM, QD
     Route: 048
  32. ESOMEPRAZOLE MAGNESIUM [Concomitant]
     Active Substance: ESOMEPRAZOLE MAGNESIUM
     Dosage: 20 MILLIGRAM, QD

REACTIONS (4)
  - Respiratory distress [Recovered/Resolved]
  - Sinus tachycardia [Recovered/Resolved]
  - Drug interaction [Recovered/Resolved]
  - Wrong product administered [Recovered/Resolved]

NARRATIVE: CASE EVENT DATE: 20250918
